FAERS Safety Report 14171660 (Version 1)
Quarter: 2017Q4

REPORT INFORMATION
  Report Type: Spontaneous
  Country: US (occurrence: US)
  Receive Date: 20171108
  Receipt Date: 20171108
  Transmission Date: 20180321
  Serious: No
  Sender: FDA-Public Use
  Company Number: US-009507513-1710USA007037

PATIENT
  Sex: Female

DRUGS (1)
  1. NEXPLANON [Suspect]
     Active Substance: ETONOGESTREL
     Dosage: ROUTE REPORTED AS: LEFT ARM-IMPLANT; EVERY 3 YEARS
     Route: 059

REACTIONS (1)
  - Incorrect drug administration duration [Unknown]
